FAERS Safety Report 23182679 (Version 1)
Quarter: 2023Q4

REPORT INFORMATION
  Report Type: Spontaneous
  Country: TW (occurrence: TW)
  Receive Date: 20231114
  Receipt Date: 20231114
  Transmission Date: 20240109
  Serious: Yes (Death)
  Sender: FDA-Public Use
  Company Number: TW-PFIZER INC-202300360858

PATIENT
  Age: 71 Year
  Sex: Male

DRUGS (2)
  1. AXITINIB [Suspect]
     Active Substance: AXITINIB
     Dosage: 3 MG, 2X/DAY
     Dates: start: 201708
  2. AXITINIB [Suspect]
     Active Substance: AXITINIB
     Dosage: 4 MG, 2X/DAY

REACTIONS (1)
  - Fall [Fatal]

NARRATIVE: CASE EVENT DATE: 20180801
